FAERS Safety Report 8331392-9 (Version None)
Quarter: 2012Q2

REPORT INFORMATION
  Report Type: 
  Country: None (occurrence: None)
  Receive Date: 20120502
  Receipt Date: 20120501
  Transmission Date: 20120825
  Serious: Yes (Other)
  Sender: FDA-Public Use
  Company Number: US-ROCHE-1059213

PATIENT
  Sex: Female

DRUGS (3)
  1. PREDNISOLONE [Concomitant]
  2. TAMIFLU [Suspect]
     Indication: VIRAL INFECTION
  3. RITUXAN [Suspect]
     Indication: PRODUCT USED FOR UNKNOWN INDICATION

REACTIONS (13)
  - URTICARIA [None]
  - MUSCLE ATROPHY [None]
  - HEADACHE [None]
  - HYPERSENSITIVITY [None]
  - WEIGHT DECREASED [None]
  - VIRAL INFECTION [None]
  - ILL-DEFINED DISORDER [None]
  - DRUG INEFFECTIVE [None]
  - DECREASED APPETITE [None]
  - BLOOD CREATINE PHOSPHOKINASE DECREASED [None]
  - BLOOD CREATINE PHOSPHOKINASE INCREASED [None]
  - MASS [None]
  - INFUSION RELATED REACTION [None]
